FAERS Safety Report 4376067-6 (Version None)
Quarter: 2004Q2

REPORT INFORMATION
  Report Type: 
  Country: None (occurrence: None)
  Receive Date: 20040607
  Receipt Date: 20040526
  Transmission Date: 20050107
  Serious: Yes (Hospitalization)
  Sender: FDA-Public Use
  Company Number: 2004035983

PATIENT
  Age: 84 Year
  Sex: Female

DRUGS (2)
  1. CITALOR (ATORVASTATIN) [Suspect]
     Indication: DYSLIPIDAEMIA
     Dosage: (1 IN 1 D), ORAL
     Route: 048
     Dates: start: 20030701, end: 20040412
  2. METHYLDOPA [Concomitant]

REACTIONS (1)
  - CEREBRAL ISCHAEMIA [None]
